FAERS Safety Report 9719783 (Version 2)
Quarter: 2013Q4

REPORT INFORMATION
  Report Type: Spontaneous
  Country: GB (occurrence: GB)
  Receive Date: 20131128
  Receipt Date: 20131128
  Transmission Date: 20140711
  Serious: Yes (Death, Other)
  Sender: FDA-Public Use
  Company Number: GB-BEH-2013035373

PATIENT
  Age: 91 Year
  Sex: Female

DRUGS (10)
  1. BERIPLEX [Suspect]
     Indication: SUBDURAL HAEMATOMA
     Route: 042
     Dates: start: 20130311
  2. VITAMIN K [Suspect]
     Route: 042
     Dates: start: 20130311
  3. BISOPROLOL [Concomitant]
     Route: 048
  4. CITALOPRAM [Concomitant]
     Route: 048
  5. DIGOXIN [Concomitant]
  6. FUROSEMIDE [Concomitant]
  7. LISINOPRIL [Concomitant]
  8. IRBESARTAN [Concomitant]
  9. PARACETAMOL [Concomitant]
     Route: 042
     Dates: start: 20130311
  10. METOCLOPRAMIDE [Concomitant]
     Route: 042
     Dates: start: 20130311

REACTIONS (2)
  - International normalised ratio increased [Fatal]
  - Drug ineffective [Fatal]
